FAERS Safety Report 25428751 (Version 1)
Quarter: 2025Q2

REPORT INFORMATION
  Report Type: Spontaneous
  Country: AR (occurrence: AR)
  Receive Date: 20250612
  Receipt Date: 20250612
  Transmission Date: 20250717
  Serious: Yes (Other)
  Sender: TEVA
  Company Number: AR-TEVA-VS-3339802

PATIENT
  Age: 59 Year
  Sex: Female

DRUGS (1)
  1. NEOTIGASON [Suspect]
     Active Substance: ACITRETIN
     Indication: Psoriasis
     Dosage: 25MG, 1 TABLET PER DAY.
     Route: 065
     Dates: start: 20250509

REACTIONS (6)
  - Psoriasis [Not Recovered/Not Resolved]
  - Epistaxis [Not Recovered/Not Resolved]
  - Cheilitis [Not Recovered/Not Resolved]
  - Mucosal irritation [Not Recovered/Not Resolved]
  - Pruritus [Not Recovered/Not Resolved]
  - Ulcer [Not Recovered/Not Resolved]

NARRATIVE: CASE EVENT DATE: 20250529
